FAERS Safety Report 6173996-8 (Version None)
Quarter: 2009Q2

REPORT INFORMATION
  Report Type: 
  Country: None (occurrence: None)
  Receive Date: 20090430
  Receipt Date: 20080527
  Transmission Date: 20091009
  Serious: No
  Sender: FDA-Public Use
  Company Number: US-ASTRAZENECA-2005UW08192

PATIENT
  Age: 40 Year
  Sex: Female
  Weight: 79.4 kg

DRUGS (4)
  1. NEXIUM [Suspect]
     Indication: DYSPEPSIA
     Route: 048
     Dates: start: 20030101
  2. LEVOXYL [Concomitant]
  3. ATENOLOL [Concomitant]
  4. KLONOPIN [Concomitant]

REACTIONS (5)
  - BLOOD PRESSURE INCREASED [None]
  - TACHYCARDIA [None]
  - THYROID FUNCTION TEST ABNORMAL [None]
  - THYROID OPERATION [None]
  - WEIGHT INCREASED [None]
